FAERS Safety Report 17214297 (Version 1)
Quarter: 2019Q4

REPORT INFORMATION
  Report Type: Report from Study
  Country: US (occurrence: US)
  Receive Date: 20191230
  Receipt Date: 20191230
  Transmission Date: 20200122
  Serious: Yes (Hospitalization)
  Sender: FDA-Public Use
  Company Number: US-EISAI MEDICAL RESEARCH-EC-2019-065602

PATIENT
  Age: 62 Year
  Sex: Male

DRUGS (10)
  1. FUROSEMIDE. [Concomitant]
     Active Substance: FUROSEMIDE
  2. CARVEDILOL. [Concomitant]
     Active Substance: CARVEDILOL
  3. GABAPENTIN. [Concomitant]
     Active Substance: GABAPENTIN
  4. ELIQUIS [Concomitant]
     Active Substance: APIXABAN
  5. AMLODIPINE [Concomitant]
     Active Substance: AMLODIPINE BESYLATE
  6. GLIPIZIDE. [Concomitant]
     Active Substance: GLIPIZIDE
  7. LOSARTAN. [Concomitant]
     Active Substance: LOSARTAN
  8. BACTRIM [Concomitant]
     Active Substance: SULFAMETHOXAZOLE\TRIMETHOPRIM
  9. METFORMIN [Concomitant]
     Active Substance: METFORMIN HYDROCHLORIDE
  10. LENVIMA [Suspect]
     Active Substance: LENVATINIB
     Indication: HEPATOCELLULAR CARCINOMA
     Route: 048
     Dates: start: 20191108

REACTIONS (14)
  - Hypotension [Unknown]
  - Feeling abnormal [Unknown]
  - Myalgia [Unknown]
  - Insomnia [Unknown]
  - Nausea [Unknown]
  - Arthralgia [Unknown]
  - Pleural effusion [Unknown]
  - Dysphonia [Unknown]
  - Blood pressure increased [Unknown]
  - Diarrhoea [Unknown]
  - Lethargy [Unknown]
  - Fatigue [Unknown]
  - Pain in jaw [Unknown]
  - Chills [Unknown]

NARRATIVE: CASE EVENT DATE: 2019
